FAERS Safety Report 4683660-X (Version None)
Quarter: 2005Q2

REPORT INFORMATION
  Report Type: 
  Country: None (occurrence: None)
  Receive Date: 20050607
  Receipt Date: 20050531
  Transmission Date: 20051028
  Serious: Yes (Other)
  Sender: FDA-Public Use
  Company Number: JP-JNJFOC-20050507448

PATIENT
  Age: 41 Year
  Sex: Female

DRUGS (3)
  1. RISPERDAL [Suspect]
     Indication: DRUG USE FOR UNKNOWN INDICATION
     Route: 049
  2. SENNOSIDE [Concomitant]
     Indication: CONSTIPATION
     Route: 049
  3. FERROUS SULFATE [Concomitant]
     Indication: ANAEMIA
     Route: 049

REACTIONS (1)
  - LEUKOPENIA [None]
